FAERS Safety Report 16972156 (Version 2)
Quarter: 2019Q4

REPORT INFORMATION
  Report Type: Report from Study
  Country: US (occurrence: US)
  Receive Date: 20191029
  Receipt Date: 20191101
  Transmission Date: 20200122
  Serious: Yes (Hospitalization)
  Sender: FDA-Public Use
  Company Number: US-ACTELION-A-NJ2019-185986

PATIENT
  Sex: Female
  Weight: 72.11 kg

DRUGS (8)
  1. VELETRI [Suspect]
     Active Substance: EPOPROSTENOL
     Indication: PULMONARY ARTERIAL HYPERTENSION
     Dosage: 37 NG/KG
     Route: 042
  2. VELETRI [Suspect]
     Active Substance: EPOPROSTENOL
     Dosage: 36.97 NG/KG, PER MIN
     Route: 042
  3. VELETRI [Suspect]
     Active Substance: EPOPROSTENOL
     Dosage: 32.57 NG/KG, PER MIN
     Route: 042
  4. UPTRAVI [Suspect]
     Active Substance: SELEXIPAG
     Dosage: 1600 MCG, BID
     Route: 048
  5. OPSUMIT [Concomitant]
     Active Substance: MACITENTAN
     Indication: PULMONARY ARTERIAL HYPERTENSION
     Dosage: 10 MG, QD
     Route: 048
  6. UPTRAVI [Suspect]
     Active Substance: SELEXIPAG
     Indication: PULMONARY ARTERIAL HYPERTENSION
     Dosage: UNK
     Route: 048
  7. REVATIO [Concomitant]
     Active Substance: SILDENAFIL CITRATE
  8. VELETRI [Suspect]
     Active Substance: EPOPROSTENOL
     Dosage: 13.2 NG/KG, PER MIN
     Route: 042
     Dates: end: 20190913

REACTIONS (15)
  - Nausea [Not Recovered/Not Resolved]
  - Catheter site discolouration [Unknown]
  - Flushing [Not Recovered/Not Resolved]
  - Catheter site infection [Unknown]
  - Catheter site discharge [Unknown]
  - Malaise [Unknown]
  - Urine odour abnormal [Unknown]
  - Arthralgia [Unknown]
  - Chromaturia [Unknown]
  - Myalgia [Unknown]
  - Diarrhoea [Not Recovered/Not Resolved]
  - Dyspnoea exertional [Not Recovered/Not Resolved]
  - Catheter management [Unknown]
  - Adverse event [Unknown]
  - Device connection issue [Unknown]
